FAERS Safety Report 25858154 (Version 1)
Quarter: 2025Q3

REPORT INFORMATION
  Report Type: Spontaneous
  Country: EU (occurrence: EU)
  Receive Date: 20250929
  Receipt Date: 20250929
  Transmission Date: 20251020
  Serious: Yes (Other)
  Sender: MYLAN
  Company Number: EU-MYLANLABS-2025M1081958

PATIENT
  Age: 61 Year
  Sex: Male

DRUGS (15)
  1. ABIRATERONE [Suspect]
     Active Substance: ABIRATERONE
     Indication: Prostate cancer stage IV
     Dosage: 1000 MILLIGRAM, QD
     Dates: start: 2024
  2. ABIRATERONE [Suspect]
     Active Substance: ABIRATERONE
     Indication: Metastases to bone
  3. ABIRATERONE [Suspect]
     Active Substance: ABIRATERONE
     Indication: Metastases to lymph nodes
  4. ENZALUTAMIDE [Suspect]
     Active Substance: ENZALUTAMIDE
     Indication: Prostate cancer stage IV
     Dosage: 160 MILLIGRAM, QD
     Dates: start: 202110
  5. ENZALUTAMIDE [Suspect]
     Active Substance: ENZALUTAMIDE
     Indication: Metastases to bone
  6. ENZALUTAMIDE [Suspect]
     Active Substance: ENZALUTAMIDE
     Indication: Metastases to lymph nodes
  7. TAXOTERE [Suspect]
     Active Substance: DOCETAXEL
     Indication: Prostate cancer stage IV
  8. TAXOTERE [Suspect]
     Active Substance: DOCETAXEL
     Indication: Metastases to bone
  9. TAXOTERE [Suspect]
     Active Substance: DOCETAXEL
     Indication: Metastases to lymph nodes
  10. LEUPROLIDE [Suspect]
     Active Substance: LEUPROLIDE
     Indication: Prostate cancer stage IV
     Dosage: 11.25 MG/ML EVERY 3 MONTHS SINCE APRIL 2020, Q3MONTHS
     Dates: start: 202004
  11. LEUPROLIDE [Suspect]
     Active Substance: LEUPROLIDE
     Indication: Metastases to bone
  12. LEUPROLIDE [Suspect]
     Active Substance: LEUPROLIDE
     Indication: Metastases to lymph nodes
  13. DENOSUMAB [Suspect]
     Active Substance: DENOSUMAB
     Indication: Prostate cancer stage IV
     Dosage: UNK, MONTHLY
     Dates: start: 202007
  14. DENOSUMAB [Suspect]
     Active Substance: DENOSUMAB
     Indication: Metastases to bone
  15. DENOSUMAB [Suspect]
     Active Substance: DENOSUMAB
     Indication: Metastases to lymph nodes

REACTIONS (3)
  - Hereditary optic atrophy [Recovering/Resolving]
  - Disease progression [Unknown]
  - Drug ineffective [Unknown]

NARRATIVE: CASE EVENT DATE: 20230101
